FAERS Safety Report 4360619-3 (Version None)
Quarter: 2004Q2

REPORT INFORMATION
  Report Type: 
  Country: None (occurrence: None)
  Receive Date: 20040519
  Receipt Date: 20040514
  Transmission Date: 20050107
  Serious: Yes (Death)
  Sender: FDA-Public Use
  Company Number: LB-MERCK-0405USA01062

PATIENT
  Age: 85 Year
  Sex: Female

DRUGS (2)
  1. CANCIDAS [Suspect]
     Indication: SYSTEMIC CANDIDA
     Route: 042
     Dates: start: 20040301, end: 20040301
  2. CANCIDAS [Suspect]
     Route: 042
     Dates: start: 20040401, end: 20040401

REACTIONS (3)
  - CARDIAC ARREST [None]
  - HYPOTENSION [None]
  - SEPSIS [None]
